FAERS Safety Report 9508741 (Version 1)
Quarter: 2013Q1

REPORT INFORMATION
  Report Type: Spontaneous
  Country: US (occurrence: None)
  Receive Date: 20130305
  Receipt Date: 20130305
  Transmission Date: 20140127
  Serious: No
  Sender: FDA-Public Use
  Company Number: 163-21880-12090879

PATIENT
  Age: 81 Year
  Sex: Female

DRUGS (1)
  1. REVLIMID [Suspect]
     Indication: MYELODYSPLASTIC SYNDROME
     Dosage: 5MG, 28 IN 28D, PO
     Route: 048
     Dates: start: 20101018, end: 2011

REACTIONS (5)
  - Pleuritic pain [None]
  - Dyspnoea [None]
  - Heart rate increased [None]
  - Local swelling [None]
  - Drug dose omission [None]
